FAERS Safety Report 7930101-2 (Version None)
Quarter: 2011Q4

REPORT INFORMATION
  Report Type: 
  Country: None (occurrence: None)
  Receive Date: 20111121
  Receipt Date: 20111108
  Transmission Date: 20120403
  Serious: Yes (Hospitalization, Other)
  Sender: FDA-Public Use
  Company Number: US-BAYER-US-2007-026236

PATIENT
  Age: 33 Year
  Sex: Female
  Weight: 79 kg

DRUGS (1)
  1. MIRENA [Suspect]
     Indication: CONTRACEPTION
     Dosage: 20 MCG/24HR, CONT
     Route: 015
     Dates: start: 20060101, end: 20070601

REACTIONS (14)
  - BACK PAIN [None]
  - URINARY TRACT INFECTION [None]
  - BEDRIDDEN [None]
  - VAGINAL HAEMORRHAGE [None]
  - NAUSEA [None]
  - ABDOMINAL PAIN [None]
  - PRODUCT SHAPE ISSUE [None]
  - DYSURIA [None]
  - COITAL BLEEDING [None]
  - PAIN [None]
  - KIDNEY INFECTION [None]
  - UTERINE PERFORATION [None]
  - VOMITING [None]
  - CYSTITIS [None]
